FAERS Safety Report 16222803 (Version 1)
Quarter: 2019Q2

REPORT INFORMATION
  Report Type: Spontaneous
  Country: US (occurrence: US)
  Receive Date: 20190419
  Receipt Date: 20190419
  Transmission Date: 20190711
  Serious: Yes (Life-Threatening, Hospitalization, Disabling)
  Sender: FDA-Public Use
  Company Number: None

PATIENT
  Age: 84 Year
  Sex: Female
  Weight: 59.9 kg

DRUGS (8)
  1. KEYTRUDA [Suspect]
     Active Substance: PEMBROLIZUMAB
     Indication: SMALL CELL LUNG CANCER
     Dosage: ?          OTHER FREQUENCY:EVERY 3 WEEKS;?
     Route: 041
     Dates: start: 20180925, end: 20190311
  2. SENNOSIDES-DOCUSATE [Concomitant]
     Dates: start: 20180816, end: 20190417
  3. LOPERAMIDE [Concomitant]
     Active Substance: LOPERAMIDE
     Dates: start: 20180810, end: 20190417
  4. POLYETHYLENE GLYCOL [Concomitant]
     Active Substance: POLYETHYLENE GLYCOLS
     Dates: start: 20180808, end: 20190417
  5. LISINOPRIL. [Concomitant]
     Active Substance: LISINOPRIL
     Dates: start: 20180813, end: 20190417
  6. MULTIVITAMIN [Concomitant]
     Active Substance: VITAMINS
     Dates: start: 20190201, end: 20190417
  7. RIVAROXABAN [Concomitant]
     Active Substance: RIVAROXABAN
     Dates: start: 20181116, end: 20190321
  8. ACETAMINOPHEN. [Concomitant]
     Active Substance: ACETAMINOPHEN
     Dates: start: 20180807

REACTIONS (4)
  - Hyperglycaemia [None]
  - Type 1 diabetes mellitus [None]
  - Immune system disorder [None]
  - Diabetic ketoacidosis [None]

NARRATIVE: CASE EVENT DATE: 20190321
